FAERS Safety Report 25084142 (Version 4)
Quarter: 2025Q4

REPORT INFORMATION
  Report Type: Spontaneous
  Country: US (occurrence: US)
  Receive Date: 20250317
  Receipt Date: 20251128
  Transmission Date: 20260118
  Serious: Yes (Hospitalization, Other)
  Sender: ACCORD
  Company Number: US-Accord-473923

PATIENT
  Age: 77 Year
  Sex: Male
  Weight: 55 kg

DRUGS (24)
  1. FLUOROURACIL [Suspect]
     Active Substance: FLUOROURACIL
     Indication: Adenocarcinoma of colon
     Dosage: 2400 MG/M2, Q2WEEKS?CYCLE DAY 1 AND 15
     Route: 042
     Dates: start: 20241022, end: 20241023
  2. IRINOTECAN [Suspect]
     Active Substance: IRINOTECAN
     Indication: Adenocarcinoma of colon
     Dosage: 180 MG/M2, Q2WEEKS?CYCLE DAY 1 AND 15
     Route: 042
     Dates: start: 20241022, end: 20241022
  3. LEUCOVORIN [Suspect]
     Active Substance: LEUCOVORIN\LEUCOVORIN CALCIUM
     Indication: Adenocarcinoma of colon
     Dosage: 400 MG/M2, Q2WEEK
     Route: 042
     Dates: start: 20241022, end: 20241022
  4. ASPARTAME\CHOLESTYRAMINE [Concomitant]
     Active Substance: ASPARTAME\CHOLESTYRAMINE
     Dates: start: 20240307
  5. FINASTERIDE [Concomitant]
     Active Substance: FINASTERIDE
     Dates: start: 20221208
  6. HYDROXYCHLOROQUINE [Concomitant]
     Active Substance: HYDROXYCHLOROQUINE
     Dates: start: 20231219
  7. LOPERAMIDE [Concomitant]
     Active Substance: LOPERAMIDE
     Dates: start: 20240307
  8. METFORMIN [Concomitant]
     Active Substance: METFORMIN HYDROCHLORIDE
     Dates: start: 20231219
  9. OXYBUTYNIN CHLORIDE [Concomitant]
     Active Substance: OXYBUTYNIN CHLORIDE
     Dates: start: 20221209
  10. PROTONIX [Concomitant]
     Active Substance: PANTOPRAZOLE SODIUM
     Dates: start: 202401
  11. TAMSULOSIN [Concomitant]
     Active Substance: TAMSULOSIN
     Dates: start: 20231219
  12. DIPHENOXYLATE [Concomitant]
     Active Substance: DIPHENOXYLATE
     Dates: start: 20240307
  13. DICYCLOMINE [Concomitant]
     Active Substance: DICYCLOMINE HYDROCHLORIDE
     Dates: start: 20240307
  14. LOPERAMIDE HYDROCHLORIDE [Concomitant]
     Active Substance: LOPERAMIDE HYDROCHLORIDE
     Dates: start: 20241127
  15. HYDROCORTISONE W/NYSTATIN [Concomitant]
     Dates: start: 20241203
  16. OXYQUINOLINE SULFATE [Concomitant]
     Active Substance: OXYQUINOLINE SULFATE
     Dates: start: 20241203
  17. POTASSIUM CHLORIDE [Concomitant]
     Active Substance: POTASSIUM CHLORIDE
     Dosage: EXTENDED RELEASE
     Dates: start: 20241217
  18. TRIAMCINOLONE ACETONIDE [Concomitant]
     Active Substance: TRIAMCINOLONE ACETONIDE
     Dates: start: 20241217
  19. UREA [Concomitant]
     Active Substance: UREA
     Dates: start: 20241226
  20. BUMETANIDE [Concomitant]
     Active Substance: BUMETANIDE
     Dates: start: 20250210
  21. CALCIUM CITRATE\VITAMIN D [Concomitant]
     Active Substance: CALCIUM CITRATE\VITAMIN D
     Dates: start: 20250214
  22. IRINOTECAN [Suspect]
     Active Substance: IRINOTECAN
     Indication: Adenocarcinoma of colon
     Dosage: 90 MG/M2, Q2WEEKS?CYCLE DAY 1 AND 15
     Route: 042
     Dates: start: 20250210, end: 20250210
  23. FLUOROURACIL [Suspect]
     Active Substance: FLUOROURACIL
     Indication: Adenocarcinoma of colon
     Dosage: 1200 MG/M2 Q2WEEKS;?CYCLE DAY 1 AND 15
     Route: 042
     Dates: start: 20241211, end: 20241212
  24. LEUCOVORIN [Suspect]
     Active Substance: LEUCOVORIN\LEUCOVORIN CALCIUM
     Indication: Adenocarcinoma of colon
     Dosage: 400 MG/M2, Q2WEEK
     Route: 042
     Dates: start: 20241211, end: 20241211

REACTIONS (1)
  - Generalised oedema [Recovered/Resolved]

NARRATIVE: CASE EVENT DATE: 20250218
